FAERS Safety Report 4517689-9 (Version None)
Quarter: 2004Q4

REPORT INFORMATION
  Report Type: 
  Country: None (occurrence: None)
  Receive Date: 20041202
  Receipt Date: 20041202
  Transmission Date: 20050328
  Serious: Yes (Death)
  Sender: FDA-Public Use
  Company Number: None

PATIENT
  Age: 74 Year
  Sex: Male

DRUGS (2)
  1. CISPLATIN [Suspect]
     Indication: LUNG NEOPLASM MALIGNANT
     Dates: start: 20040809
  2. VEPESID [Suspect]
     Indication: LUNG NEOPLASM MALIGNANT
     Dates: start: 20040809

REACTIONS (3)
  - APNOEA [None]
  - COMA [None]
  - PULSE PRESSURE DECREASED [None]
